FAERS Safety Report 12483475 (Version 13)
Quarter: 2020Q2

REPORT INFORMATION
  Report Type: Report from Study
  Country: US (occurrence: US)
  Receive Date: 20160621
  Receipt Date: 20200519
  Transmission Date: 20200713
  Serious: Yes (Other)
  Sender: FDA-Public Use
  Company Number: PHHY2016US084204

PATIENT
  Age: 58 Year
  Sex: Female

DRUGS (1)
  1. GILENYA [Suspect]
     Active Substance: FINGOLIMOD HYDROCHLORIDE
     Indication: MULTIPLE SCLEROSIS
     Dosage: UNK, QD
     Route: 048

REACTIONS (17)
  - Urinary incontinence [Unknown]
  - Pneumonia [Unknown]
  - Micturition urgency [Unknown]
  - Upper respiratory tract infection [Unknown]
  - Aspartate aminotransferase increased [Unknown]
  - Fatigue [Not Recovered/Not Resolved]
  - Fall [Unknown]
  - Insomnia [Not Recovered/Not Resolved]
  - Visual impairment [Unknown]
  - Nausea [Unknown]
  - Hemiparaesthesia [Not Recovered/Not Resolved]
  - Bronchitis [Unknown]
  - Limb discomfort [Recovered/Resolved]
  - Alanine aminotransferase increased [Unknown]
  - Asthenia [Unknown]
  - Lymphocyte count decreased [Unknown]
  - Hemiparesis [Not Recovered/Not Resolved]

NARRATIVE: CASE EVENT DATE: 20151025
